FAERS Safety Report 12432648 (Version 2)
Quarter: 2016Q2

REPORT INFORMATION
  Report Type: Spontaneous
  Country: HU (occurrence: HU)
  Receive Date: 20160603
  Receipt Date: 20160613
  Transmission Date: 20160815
  Serious: Yes (Other)
  Sender: FDA-Public Use
  Company Number: HU-AMGEN-HUNSP2016070494

PATIENT
  Age: 41 Year
  Sex: Female
  Weight: 98 kg

DRUGS (5)
  1. DALNESSA [Concomitant]
     Indication: HYPERTENSION
     Dosage: 4 MG/ 5 MG, 2X1, STARTED 3 YEARS AGO
  2. HUMA-FOLACID [Concomitant]
     Dosage: 5 MG, ON TUESDAY AND FRIDAY 1X1, STARTED 4 YEARS AGO
  3. HUMA-FOLACID [Concomitant]
     Indication: SUPPLEMENTATION THERAPY
     Dosage: 5 MG, ON TUESDAY AND FRIDAY 1X1, STARTED 4 YEARS AGO
  4. ENBREL [Suspect]
     Active Substance: ETANERCEPT
     Indication: RHEUMATOID ARTHRITIS
     Dosage: 50 MG, WEEKLY 1X1 INJECTION (THURSDAY)
     Route: 065
     Dates: start: 201505, end: 201603
  5. TREXAN                             /00113801/ [Concomitant]
     Active Substance: METHOTREXATE SODIUM
     Indication: RHEUMATOID ARTHRITIS
     Dosage: 2.5 MG, WEEKLY 1X6 TIMES, STARTED 4 YEARS AGO

REACTIONS (4)
  - Drug ineffective [Recovered/Resolved]
  - Condition aggravated [Recovered/Resolved]
  - Rheumatoid arthritis [Recovered/Resolved]
  - Nasopharyngitis [Recovered/Resolved]

NARRATIVE: CASE EVENT DATE: 201601
